FAERS Safety Report 14091979 (Version 1)
Quarter: 2017Q4

REPORT INFORMATION
  Report Type: Spontaneous
  Country: US (occurrence: None)
  Receive Date: 20171014
  Receipt Date: 20171014
  Transmission Date: 20180321
  Serious: Yes (Hospitalization)
  Sender: FDA-Public Use
  Company Number: None

PATIENT
  Age: 77 Year
  Sex: Female
  Weight: 74.7 kg

DRUGS (4)
  1. VINCRISTINE SULFATE. [Suspect]
     Active Substance: VINCRISTINE SULFATE
     Dates: end: 20170629
  2. PREDNISONE. [Suspect]
     Active Substance: PREDNISONE
     Dates: end: 20170703
  3. MERCAPTOPURINE. [Suspect]
     Active Substance: MERCAPTOPURINE
     Dates: end: 20170708
  4. METHOTREXATE. [Suspect]
     Active Substance: METHOTREXATE
     Dates: end: 20170706

REACTIONS (5)
  - Blood pressure increased [None]
  - Pseudomonas test positive [None]
  - Diarrhoea [None]
  - Chills [None]
  - Blood culture positive [None]

NARRATIVE: CASE EVENT DATE: 20170709
